FAERS Safety Report 8929236 (Version 3)
Quarter: 2014Q2

REPORT INFORMATION
  Report Type: Report from Study
  Country: IE (occurrence: IE)
  Receive Date: 20121127
  Receipt Date: 20140616
  Transmission Date: 20141212
  Serious: Yes (Hospitalization, Other)
  Sender: FDA-Public Use
  Company Number: IE-TEVA-372490USA

PATIENT
  Age: 66 Year
  Sex: Male
  Weight: 93.1 kg

DRUGS (13)
  1. BENDAMUSTINE [Suspect]
     Indication: NON-HODGKIN^S LYMPHOMA
     Route: 042
     Dates: start: 20120202, end: 20120423
  2. RITUXIMAB [Suspect]
     Indication: NON-HODGKIN^S LYMPHOMA
     Route: 042
     Dates: start: 20120202, end: 20120423
  3. INNOHEP 20000 [Suspect]
     Indication: PULMONARY EMBOLISM
     Dosage: UID/QD
     Route: 058
  4. CO-TRIMOXAZOLE [Concomitant]
     Indication: PNEUMONITIS
     Dosage: 10800 MILLIGRAM DAILY;
     Route: 048
     Dates: start: 20120328, end: 20120404
  5. IPRATROPIUM BROMIDE [Concomitant]
     Indication: PNEUMONITIS
     Route: 055
     Dates: start: 20120402, end: 20120404
  6. MOVICOL [Concomitant]
     Indication: CONSTIPATION
     Route: 048
     Dates: start: 20120324, end: 20120402
  7. SENOKOT [Concomitant]
     Indication: CONSTIPATION
     Route: 048
     Dates: start: 20120324
  8. PARACETAMOL [Concomitant]
     Indication: BACK PAIN
     Dosage: 4 GRAM DAILY;
     Route: 048
     Dates: start: 20120323
  9. VERSATIS [Concomitant]
     Route: 061
     Dates: start: 20120323
  10. CARDICOR [Concomitant]
     Indication: TACHYCARDIA
     Dosage: 1.25 MILLIGRAM DAILY;
     Route: 048
     Dates: start: 20120301
  11. LYRICA [Concomitant]
     Indication: BACK PAIN
     Dosage: 100 MILLIGRAM DAILY;
     Route: 048
     Dates: start: 20120326, end: 20120403
  12. OXYNORM [Concomitant]
     Indication: BACK PAIN
     Dosage: PRN
     Route: 048
     Dates: start: 20120323
  13. LACTULOSE [Concomitant]
     Indication: CONSTIPATION
     Dosage: 20 MILLIGRAM DAILY;
     Route: 048
     Dates: start: 20120323, end: 20120417

REACTIONS (1)
  - Abdominal wall haematoma [Recovered/Resolved]
